FAERS Safety Report 10151894 (Version 1)
Quarter: 2014Q2

REPORT INFORMATION
  Report Type: Spontaneous
  Country: US (occurrence: US)
  Receive Date: 20140505
  Receipt Date: 20140505
  Transmission Date: 20141212
  Serious: No
  Sender: FDA-Public Use
  Company Number: US-009507513-1404USA012958

PATIENT
  Sex: Male

DRUGS (3)
  1. LOSARTAN POTASSIUM [Suspect]
     Dosage: IN THE EVENING
     Route: 048
     Dates: start: 2011
  2. AMLODIPINE [Suspect]
     Dosage: IN THE MORNING
     Dates: start: 2011
  3. EXFORGE [Concomitant]
     Dosage: UNK
     Dates: start: 2011

REACTIONS (2)
  - Lethargy [Unknown]
  - Somnolence [Unknown]
